FAERS Safety Report 23335658 (Version 6)
Quarter: 2024Q2

REPORT INFORMATION
  Report Type: Spontaneous
  Country: TW (occurrence: TW)
  Receive Date: 20231225
  Receipt Date: 20240422
  Transmission Date: 20240716
  Serious: Yes (Hospitalization, Other)
  Sender: FDA-Public Use
  Company Number: TW-Accord-396435

PATIENT
  Age: 50 Year
  Sex: Male
  Weight: 69.0 kg

DRUGS (26)
  1. FLUOROURACIL [Suspect]
     Active Substance: FLUOROURACIL
     Indication: Squamous cell carcinoma of head and neck
     Dosage: QD D1 TO D4, 1Q3W
     Route: 042
     Dates: start: 20231024, end: 20231029
  2. CARBOPLATIN [Suspect]
     Active Substance: CARBOPLATIN
     Indication: Squamous cell carcinoma of head and neck
     Dosage: AUC 5, 1Q3W
     Route: 042
     Dates: start: 20231024, end: 20231114
  3. PEMBROLIZUMAB [Concomitant]
     Active Substance: PEMBROLIZUMAB
     Indication: Squamous cell carcinoma of head and neck
     Dosage: 1Q3W
     Route: 042
     Dates: start: 20231024, end: 20231114
  4. APREPITANT [Concomitant]
     Active Substance: APREPITANT
     Dates: start: 20231114, end: 20231117
  5. DEXAMETHASONE PHOSPHATE [Concomitant]
     Active Substance: DEXAMETHASONE PHOSPHATE
     Dates: start: 20231114, end: 20231114
  6. SENNOSIDES A AND B [Concomitant]
     Active Substance: SENNOSIDES A AND B
     Dates: start: 20231107
  7. GLUCOSE W/SODIUM CHLORIDE [Concomitant]
     Dates: start: 20231107, end: 20231224
  8. EVAC [Concomitant]
     Dates: start: 20231107, end: 20231107
  9. NYSTATIN W/NEOMY.SULF./GRAMIC./TRIA [Concomitant]
     Dates: start: 20231222, end: 20240104
  10. LIDOCAINE COMP [Concomitant]
     Dates: start: 20231226, end: 20231226
  11. DIPHENHYDRAMINE HYDROCHLORIDE [Concomitant]
     Active Substance: DIPHENHYDRAMINE HYDROCHLORIDE
     Dates: start: 20231204, end: 20231227
  12. LINAGLIPTIN [Concomitant]
     Active Substance: LINAGLIPTIN
     Dates: start: 20231130, end: 20240125
  13. PALONOSETRON [Concomitant]
     Active Substance: PALONOSETRON
     Dates: start: 20231114, end: 20231114
  14. DEXAMETHASONE PHOSPHATE [Concomitant]
     Active Substance: DEXAMETHASONE PHOSPHATE
     Dates: start: 20231114, end: 20231114
  15. MAGNESIUM SULFATE [Concomitant]
     Active Substance: MAGNESIUM SULFATE\MAGNESIUM SULFATE HEPTAHYDRATE
     Dosage: 10 PERCENT
     Dates: start: 20231107, end: 20231228
  16. MAGNESIUM OXIDE [Concomitant]
     Active Substance: MAGNESIUM OXIDE
     Dates: start: 20231101, end: 20231108
  17. PARACETAMOL W/TRAMADOL HYDROCHLORID [Concomitant]
     Dates: start: 20231208, end: 20240104
  18. GLUCOSE W/SODIUM CHLORIDE [Concomitant]
     Dates: start: 20231219, end: 20231224
  19. HYDROCORTISONE [Concomitant]
     Active Substance: HYDROCORTISONE
     Dates: start: 20231204, end: 20231207
  20. POTASSIUM CHLORIDE [Concomitant]
     Active Substance: POTASSIUM CHLORIDE
     Dates: start: 20231222, end: 20231227
  21. MEPERIDINE [Concomitant]
     Active Substance: MEPERIDINE
     Dates: start: 20231128, end: 20231129
  22. INSULIN GLARGINE [Concomitant]
     Active Substance: INSULIN GLARGINE
     Dates: start: 20231130, end: 20231206
  23. FAMOTIDINE [Concomitant]
     Active Substance: FAMOTIDINE
     Dates: start: 20231114, end: 20231121
  24. LACTULOSE [Concomitant]
     Active Substance: LACTULOSE
     Dates: start: 20231107, end: 20231107
  25. REPAGLINIDE [Concomitant]
     Active Substance: REPAGLINIDE
     Dates: start: 20231130, end: 20240125
  26. FLUOROURACIL [Suspect]
     Active Substance: FLUOROURACIL
     Indication: Squamous cell carcinoma of head and neck
     Dosage: QD D1 TO D4, 1Q3W
     Route: 042
     Dates: start: 20231114, end: 20231118

REACTIONS (3)
  - Febrile neutropenia [Recovered/Resolved]
  - Catheter site infection [Recovered/Resolved]
  - Otitis media chronic [Unknown]

NARRATIVE: CASE EVENT DATE: 20231204
